FAERS Safety Report 23976506 (Version 1)
Quarter: 2024Q2

REPORT INFORMATION
  Report Type: Spontaneous
  Country: ES (occurrence: ES)
  Receive Date: 20240614
  Receipt Date: 20240614
  Transmission Date: 20240716
  Serious: Yes (Other)
  Sender: FDA-Public Use
  Company Number: ES-SUN PHARMACEUTICAL INDUSTRIES LTD-2024R1-450848

PATIENT
  Age: 45 Year
  Sex: Male

DRUGS (3)
  1. TOPIRAMATE [Suspect]
     Active Substance: TOPIRAMATE
     Indication: Personality disorder
     Dosage: UNK
     Route: 065
  2. FLUOXETINE [Concomitant]
     Active Substance: FLUOXETINE HYDROCHLORIDE
     Indication: Personality disorder
     Dosage: UNK
     Route: 065
  3. LORAZEPAM [Concomitant]
     Active Substance: LORAZEPAM
     Indication: Personality disorder
     Dosage: UNK
     Route: 065

REACTIONS (3)
  - Suicide attempt [Unknown]
  - Metabolic acidosis [Unknown]
  - Retrograde amnesia [Unknown]
